FAERS Safety Report 24805877 (Version 6)
Quarter: 2025Q3

REPORT INFORMATION
  Report Type: Spontaneous
  Country: US (occurrence: US)
  Receive Date: 20250103
  Receipt Date: 20250917
  Transmission Date: 20251021
  Serious: Yes (Other)
  Sender: PFIZER
  Company Number: US-PFIZER INC-202400335905

PATIENT
  Age: 81 Year
  Sex: Female

DRUGS (11)
  1. XELJANZ XR [Suspect]
     Active Substance: TOFACITINIB CITRATE
     Indication: Rheumatoid arthritis
  2. XELJANZ XR [Suspect]
     Active Substance: TOFACITINIB CITRATE
     Indication: Chondrocalcinosis
     Dosage: 11 MG, 1X/DAY
     Route: 048
     Dates: start: 202307
  3. XELJANZ XR [Suspect]
     Active Substance: TOFACITINIB CITRATE
     Indication: Osteoarthritis
  4. XELJANZ XR [Suspect]
     Active Substance: TOFACITINIB CITRATE
     Indication: Arthropathy
  5. IRON [Concomitant]
     Active Substance: IRON
  6. ALENDRONATE [Concomitant]
     Active Substance: ALENDRONATE SODIUM
  7. VITAMIN D NOS [Concomitant]
     Active Substance: CHOLECALCIFEROL\ERGOCALCIFEROL
  8. VITAMIN C [Concomitant]
     Active Substance: ASCORBIC ACID
  9. LEVOTHYROXINE [Concomitant]
     Active Substance: LEVOTHYROXINE
  10. LATANOPROST [Concomitant]
     Active Substance: LATANOPROST
  11. TIMOLOL [Concomitant]
     Active Substance: TIMOLOL

REACTIONS (5)
  - Glaucoma [Unknown]
  - Blood iron decreased [Unknown]
  - Insomnia [Unknown]
  - Pain [Unknown]
  - Blood cholesterol abnormal [Unknown]
